FAERS Safety Report 19088373 (Version 1)
Quarter: 2021Q2

REPORT INFORMATION
  Report Type: Report from Study
  Country: US (occurrence: US)
  Receive Date: 20210402
  Receipt Date: 20210402
  Transmission Date: 20210717
  Serious: Yes (Other)
  Sender: FDA-Public Use
  Company Number: US-ASTRAZENECA-2021A021511

PATIENT
  Sex: Male

DRUGS (1)
  1. LYNPARZA [Suspect]
     Active Substance: OLAPARIB
     Indication: PROSTATE CANCER
     Route: 048
     Dates: start: 20210106

REACTIONS (6)
  - Fatigue [Recovering/Resolving]
  - Ascites [Not Recovered/Not Resolved]
  - Liver injury [Unknown]
  - Decreased appetite [Recovering/Resolving]
  - Oedema peripheral [Recovered/Resolved]
  - Muscle atrophy [Unknown]
